FAERS Safety Report 5956565-1 (Version None)
Quarter: 2008Q4

REPORT INFORMATION
  Report Type: 
  Country: None (occurrence: None)
  Receive Date: 20081103
  Receipt Date: 20080520
  Transmission Date: 20090506
  Serious: Yes (Other)
  Sender: FDA-Public Use
  Company Number: DSA_31900_2008

PATIENT
  Age: 3 Year

DRUGS (1)
  1. ATIVAN [Suspect]
     Dates: start: 20080501

REACTIONS (3)
  - DRUG LEVEL INCREASED [None]
  - DRUG SCREEN POSITIVE [None]
  - OVERDOSE [None]
